FAERS Safety Report 24219119 (Version 2)
Quarter: 2024Q3

REPORT INFORMATION
  Report Type: Report from Study
  Country: US (occurrence: US)
  Receive Date: 20240816
  Receipt Date: 20240911
  Transmission Date: 20241016
  Serious: Yes (Hospitalization, Other)
  Sender: BAYER
  Company Number: US-BAYER-2024A114116

PATIENT
  Age: 60 Year
  Sex: Male
  Weight: 123.81 kg

DRUGS (15)
  1. ADEMPAS [Suspect]
     Active Substance: RIOCIGUAT
     Indication: Pulmonary arterial hypertension
     Dosage: UNK
     Dates: start: 20191218
  2. ADEMPAS [Suspect]
     Active Substance: RIOCIGUAT
     Indication: Pulmonary arterial hypertension
     Dosage: 1.0 MG, BID
     Route: 048
  3. SODIUM [Suspect]
     Active Substance: SODIUM
  4. UPTRAVI [Concomitant]
     Active Substance: SELEXIPAG
  5. FUROSEMIDE [Concomitant]
     Active Substance: FUROSEMIDE
  6. AMLODIPINE BESYLATE [Concomitant]
     Active Substance: AMLODIPINE BESYLATE
  7. ATORVASTATIN CALCIUM [Concomitant]
     Active Substance: ATORVASTATIN CALCIUM
  8. CYANOCOBALAMIN\DEXPANTHENOL\NIACINAMIDE\PYRIDOXINE HYDROCHLORIDE\RIBOF [Concomitant]
     Active Substance: CYANOCOBALAMIN\DEXPANTHENOL\NIACINAMIDE\PYRIDOXINE HYDROCHLORIDE\RIBOFLAVIN 5^-PHOSPHATE SODIUM\THIA
  9. PREDNISONE [Concomitant]
     Active Substance: PREDNISONE
  10. ALLOPURINOL [Concomitant]
     Active Substance: ALLOPURINOL
  11. VITAMINS [Concomitant]
     Active Substance: VITAMINS
  12. OPSUMIT [Concomitant]
     Active Substance: MACITENTAN
  13. BUSPIRONE HCL [Concomitant]
     Active Substance: BUSPIRONE HYDROCHLORIDE
  14. OXYGEN [Concomitant]
     Active Substance: OXYGEN
  15. CITALOPRAM [Concomitant]
     Active Substance: CITALOPRAM\CITALOPRAM HYDROBROMIDE

REACTIONS (7)
  - Syncope [None]
  - Respiratory arrest [None]
  - Hepatic cirrhosis [None]
  - Adverse event [None]
  - Inappropriate schedule of product administration [None]
  - Abdominal distension [Not Recovered/Not Resolved]
  - Localised oedema [None]

NARRATIVE: CASE EVENT DATE: 20240805
